FAERS Safety Report 25031790 (Version 2)
Quarter: 2025Q4

REPORT INFORMATION
  Report Type: Report from Study
  Country: CA (occurrence: CA)
  Receive Date: 20250303
  Receipt Date: 20251105
  Transmission Date: 20260117
  Serious: Yes (Other)
  Sender: JOHNSON AND JOHNSON
  Company Number: CA-JNJFOC-20250171697

PATIENT
  Age: 51 Year
  Sex: Male

DRUGS (2)
  1. SIMPONI [Suspect]
     Active Substance: GOLIMUMAB
     Indication: Ankylosing spondylitis
     Route: 058
     Dates: start: 20190412
  2. SIMPONI [Suspect]
     Active Substance: GOLIMUMAB
     Dosage: THIS WAS THE LAST DOSE PRIOR TO DISCONTINUATION (D/C)
     Route: 058

REACTIONS (3)
  - Umbilical hernia [Unknown]
  - Post procedural infection [Unknown]
  - Off label use [Unknown]

NARRATIVE: CASE EVENT DATE: 20190412
